FAERS Safety Report 8129389-7 (Version None)
Quarter: 2012Q1

REPORT INFORMATION
  Report Type: 
  Country: None (occurrence: None)
  Receive Date: 20120210
  Receipt Date: 20120203
  Transmission Date: 20120608
  Serious: Yes (Other)
  Sender: FDA-Public Use
  Company Number: PT-JNJFOC-20120201722

PATIENT
  Sex: Female

DRUGS (8)
  1. HALDOL [Suspect]
     Route: 048
  2. HALDOL [Suspect]
     Indication: PSYCHOMOTOR HYPERACTIVITY
     Route: 048
     Dates: start: 20120101
  3. HALDOL [Suspect]
     Route: 048
  4. HALDOL [Suspect]
     Route: 048
  5. HALDOL [Suspect]
     Route: 048
     Dates: end: 20120202
  6. HALDOL [Suspect]
     Route: 048
  7. HALDOL [Suspect]
     Indication: INSOMNIA
     Route: 048
     Dates: start: 20120101
  8. HALDOL [Suspect]
     Route: 048
     Dates: end: 20120202

REACTIONS (11)
  - SUICIDAL IDEATION [None]
  - APATHY [None]
  - RESTLESS LEGS SYNDROME [None]
  - PIGMENTATION DISORDER [None]
  - OFF LABEL USE [None]
  - WRONG TECHNIQUE IN DRUG USAGE PROCESS [None]
  - TREATMENT NONCOMPLIANCE [None]
  - DRUG DOSE OMISSION [None]
  - CHEST PAIN [None]
  - SPEECH DISORDER [None]
  - INSOMNIA [None]
